FAERS Safety Report 8724226 (Version 3)
Quarter: 2012Q4

REPORT INFORMATION
  Report Type: 
  Country: AR (occurrence: AR)
  Receive Date: 20120815
  Receipt Date: 20120913
  Transmission Date: 20130627
  Serious: Yes (Other)
  Sender: FDA-Public Use
  Company Number: AR-PFIZER INC-2012194327

PATIENT
  Age: 61 Year
  Sex: Female

DRUGS (3)
  1. SOMAVERT [Suspect]
     Indication: ACROMEGALY
     Dosage: 10 mg, 1xday, 7injections/week
     Route: 058
     Dates: start: 20110701
  2. LOTRIAL [Concomitant]
     Dosage: UNK
  3. OMEPRAZOL [Concomitant]
     Dosage: UNK

REACTIONS (1)
  - Lung neoplasm [Not Recovered/Not Resolved]
